FAERS Safety Report 14728085 (Version 1)
Quarter: 2018Q2

REPORT INFORMATION
  Report Type: Spontaneous
  Country: RO (occurrence: RO)
  Receive Date: 20180406
  Receipt Date: 20180406
  Transmission Date: 20180711
  Serious: Yes (Other)
  Sender: FDA-Public Use
  Company Number: RO-TAKEDA-2018TEU001565

PATIENT
  Age: 32 Year
  Sex: Female

DRUGS (2)
  1. LANSOPRAZOLE. [Suspect]
     Active Substance: LANSOPRAZOLE
     Indication: DYSPEPSIA
  2. LANSOPRAZOLE. [Suspect]
     Active Substance: LANSOPRAZOLE
     Indication: DYSPEPSIA
     Dosage: UNK
     Route: 065

REACTIONS (12)
  - Conjunctival hyperaemia [Unknown]
  - Pruritus [Unknown]
  - Nonspecific reaction [Unknown]
  - Asthenia [Unknown]
  - Presyncope [Unknown]
  - Generalised erythema [Unknown]
  - Nausea [Unknown]
  - Drug hypersensitivity [Unknown]
  - Nasal obstruction [Unknown]
  - Rhinorrhoea [Unknown]
  - Anaphylactic reaction [Unknown]
  - Diarrhoea [Unknown]
